FAERS Safety Report 8003284-6 (Version None)
Quarter: 2011Q4

REPORT INFORMATION
  Report Type: 
  Country: None (occurrence: None)
  Receive Date: 20111222
  Receipt Date: 20111219
  Transmission Date: 20120403
  Serious: Yes (Other)
  Sender: FDA-Public Use
  Company Number: PHHY2011DE60428

PATIENT
  Sex: Female

DRUGS (1)
  1. GILENYA [Suspect]
     Indication: MULTIPLE SCLEROSIS
     Dosage: 0.5 MG, DAILY
     Route: 048
     Dates: start: 20110406

REACTIONS (6)
  - HYPERTENSION [None]
  - DRUG INTERACTION [None]
  - HEADACHE [None]
  - TACHYCARDIA [None]
  - TOOTH ABSCESS [None]
  - PANIC ATTACK [None]
